FAERS Safety Report 8574968 (Version 3)
Quarter: 2012Q4

REPORT INFORMATION
  Report Type: 
  Country: US (occurrence: US)
  Receive Date: 20120523
  Receipt Date: 20121024
  Transmission Date: 20130627
  Serious: Yes (Other)
  Sender: FDA-Public Use
  Company Number: US-PFIZER INC-2012122388

PATIENT

DRUGS (1)
  1. GEODON [Suspect]
     Dosage: UNK
     Dates: end: 201202

REACTIONS (4)
  - Tardive dyskinesia [Recovering/Resolving]
  - Weight decreased [Recovering/Resolving]
  - Therapeutic response unexpected [Unknown]
  - Weight increased [Unknown]
